FAERS Safety Report 7247348-3 (Version None)
Quarter: 2011Q1

REPORT INFORMATION
  Report Type: 
  Country: None (occurrence: None)
  Receive Date: 20110127
  Receipt Date: 20110119
  Transmission Date: 20110831
  Serious: Yes (Death, Other)
  Sender: FDA-Public Use
  Company Number: DE-GENZYME-CAMP-1001301

PATIENT
  Age: 19 Year
  Sex: Male

DRUGS (12)
  1. CAMPATH [Suspect]
     Indication: ACUTE GRAFT VERSUS HOST DISEASE
     Dosage: 3-13 MG, QD FOR 1-2 DAYS INITIALLY
     Route: 042
  2. TRIMETHOPRIM + SULFAMETHOXAZOLE [Concomitant]
     Indication: INFECTION PROPHYLAXIS
     Dosage: UNK
     Route: 065
  3. MYCOPHENOLATE MOFETIL [Concomitant]
     Indication: PROPHYLAXIS AGAINST GRAFT VERSUS HOST DISEASE
     Dosage: UNK
     Route: 065
  4. CORTICOSTEROIDS [Concomitant]
     Indication: GRAFT VERSUS HOST DISEASE
     Dosage: 2 MG/KG, QD, FOR }/= 7 DAYS
     Route: 065
  5. DACLIZUMAB [Concomitant]
     Indication: PROPHYLAXIS AGAINST GRAFT VERSUS HOST DISEASE
     Dosage: UNK
     Route: 065
  6. ACYCLOVIR [Concomitant]
     Indication: INFECTION PROPHYLAXIS
     Dosage: UNK
     Route: 065
  7. CYCLOPHOSPHAMIDE [Suspect]
     Indication: STEM CELL TRANSPLANT
     Dosage: UNK
     Route: 065
  8. ANTI-THYMOCYTE GLOBULIN NOS [Concomitant]
     Indication: PROPHYLAXIS AGAINST GRAFT VERSUS HOST DISEASE
     Dosage: UNK
     Route: 065
  9. FLUCONAZOLE [Concomitant]
     Indication: INFECTION PROPHYLAXIS
     Dosage: UNK
     Route: 065
  10. CAMPATH [Suspect]
     Dosage: 5-10 MG QD EVERY 2-3 WEEKS
  11. BUSULFAN [Suspect]
     Indication: STEM CELL TRANSPLANT
     Dosage: UNK
     Route: 065
  12. CYCLOSPORINE [Concomitant]
     Indication: PROPHYLAXIS AGAINST GRAFT VERSUS HOST DISEASE
     Dosage: UNK
     Route: 065

REACTIONS (8)
  - CYTOMEGALOVIRUS INFECTION [None]
  - TOXIC EPIDERMAL NECROLYSIS [None]
  - GRAFT VERSUS HOST DISEASE [None]
  - DEATH [None]
  - INTESTINAL HAEMORRHAGE [None]
  - ESCHERICHIA SEPSIS [None]
  - SYSTEMIC INFLAMMATORY RESPONSE SYNDROME [None]
  - PNEUMONIA [None]
